FAERS Safety Report 10612048 (Version 1)
Quarter: 2014Q4

REPORT INFORMATION
  Report Type: Spontaneous
  Country: GB (occurrence: GB)
  Receive Date: 20141126
  Receipt Date: 20141126
  Transmission Date: 20150529
  Serious: Yes (Other)
  Sender: FDA-Public Use
  Company Number: GB-009507513-1411GBR010404

PATIENT
  Sex: Male

DRUGS (2)
  1. ZISPIN SOLTAB [Suspect]
     Active Substance: MIRTAZAPINE
  2. SIMVASTATIN. [Suspect]
     Active Substance: SIMVASTATIN
     Route: 048

REACTIONS (3)
  - Obesity [Unknown]
  - Gastrectomy [Unknown]
  - Gastric banding [Unknown]
